FAERS Safety Report 24459530 (Version 1)
Quarter: 2024Q4

REPORT INFORMATION
  Report Type: Spontaneous
  Country: RS (occurrence: RS)
  Receive Date: 20241018
  Receipt Date: 20241018
  Transmission Date: 20250114
  Serious: No
  Sender: ROCHE
  Company Number: RS-ROCHE-3531059

PATIENT
  Sex: Female

DRUGS (5)
  1. MABTHERA [Suspect]
     Active Substance: RITUXIMAB
     Indication: Rheumatoid arthritis
     Route: 041
     Dates: start: 201705
  2. ADALIMUMAB [Concomitant]
     Active Substance: ADALIMUMAB
     Route: 058
  3. METHOTREXATE [Concomitant]
     Active Substance: METHOTREXATE
     Dosage: LLATER 17.5 MG WEEKLY.
  4. PLAQUENIL [Concomitant]
     Active Substance: HYDROXYCHLOROQUINE SULFATE
  5. DIPROPHOS [Concomitant]
     Active Substance: BETAMETHASONE DIPROPIONATE\BETAMETHASONE SODIUM PHOSPHATE
     Route: 030

REACTIONS (1)
  - Infusion related reaction [Unknown]
